FAERS Safety Report 15610884 (Version 1)
Quarter: 2018Q4

REPORT INFORMATION
  Report Type: Spontaneous
  Country: US (occurrence: US)
  Receive Date: 20181113
  Receipt Date: 20181113
  Transmission Date: 20190205
  Serious: No
  Sender: FDA-Public Use
  Company Number: US-ROCHE-2130866

PATIENT
  Age: 60 Year
  Sex: Male
  Weight: 120.31 kg

DRUGS (1)
  1. LUCENTIS [Suspect]
     Active Substance: RANIBIZUMAB
     Indication: NEUROPATHY PERIPHERAL
     Route: 065
     Dates: start: 2017

REACTIONS (4)
  - Product quality issue [Unknown]
  - Wrong technique in product usage process [Unknown]
  - Visual impairment [Recovered/Resolved]
  - Vitreous floaters [Recovered/Resolved]

NARRATIVE: CASE EVENT DATE: 20180308
